FAERS Safety Report 17872876 (Version 4)
Quarter: 2020Q4

REPORT INFORMATION
  Report Type: Report from Study
  Country: KR (occurrence: KR)
  Receive Date: 20200608
  Receipt Date: 20201026
  Transmission Date: 20210113
  Serious: Yes (Death, Life-Threatening, Hospitalization)
  Sender: FDA-Public Use
  Company Number: KR-INCYTE CORPORATION-2019IN009765

PATIENT

DRUGS (30)
  1. BONALING-A [Concomitant]
     Active Substance: DIMENHYDRINATE
     Indication: PRODUCT USED FOR UNKNOWN INDICATION
     Dosage: 1 DF, QD
     Route: 048
     Dates: start: 20190921, end: 20190921
  2. NEBILET [Concomitant]
     Active Substance: NEBIVOLOL
     Indication: HYPERTENSION
     Dosage: 1 DF, QD
     Route: 048
     Dates: start: 20150714, end: 20190916
  3. LANSTON [Concomitant]
     Active Substance: LANSOPRAZOLE
     Indication: PROPHYLAXIS
     Dosage: 1 DF, QD
     Route: 048
     Dates: start: 20190911, end: 20190916
  4. CONCOR [Concomitant]
     Active Substance: BISOPROLOL FUMARATE
     Indication: HYPERTENSION
     Dosage: 1 DF, QD
     Route: 048
     Dates: start: 20190828
  5. ZOLMIN [Concomitant]
     Active Substance: TRIAZOLAM
     Indication: INSOMNIA
     Dosage: 1 DF, QD
     Route: 048
     Dates: start: 20091204, end: 20190916
  6. CORDARONE [Concomitant]
     Active Substance: AMIODARONE HYDROCHLORIDE
     Indication: ANGINA PECTORIS
     Dosage: 1 DF, QD (AMPOULE)
     Route: 042
     Dates: start: 20190918, end: 20190918
  7. DULCOLAX-S [Concomitant]
     Indication: PROPHYLAXIS
     Dosage: 2 DF, QD
     Route: 048
     Dates: start: 20190926, end: 20190926
  8. JAKAVI [Suspect]
     Active Substance: RUXOLITINIB
     Indication: PRIMARY MYELOFIBROSIS
     Dosage: 15 MG, BID
     Route: 048
     Dates: start: 20190911, end: 20200520
  9. NEPHSOL [Concomitant]
     Indication: PROPHYLAXIS
     Dosage: 250 ML, QD
     Route: 042
     Dates: start: 20190920, end: 20190920
  10. CILOSTAN CR [Concomitant]
     Indication: ANGINA PECTORIS
     Dosage: 1 DF, QD
     Route: 048
     Dates: start: 20190221, end: 20190916
  11. ZIPAN [PROMETHAZINE HYDROCHLORIDE] [Concomitant]
     Indication: PRODUCT USED FOR UNKNOWN INDICATION
     Dosage: 1 DF, QD (AMPOULE)
     Route: 042
     Dates: start: 20190913, end: 20190913
  12. NORVASC [Concomitant]
     Active Substance: AMLODIPINE BESYLATE
     Indication: HYPERTENSION
     Dosage: 1 DF, QD
     Route: 048
     Dates: start: 20190918, end: 20191003
  13. NEXIUM I.V. [Concomitant]
     Active Substance: ESOMEPRAZOLE SODIUM
     Indication: PROPHYLAXIS
     Dosage: 1 DF, QD
     Route: 042
     Dates: start: 20190916, end: 20190923
  14. TRAST [Concomitant]
     Indication: PRODUCT USED FOR UNKNOWN INDICATION
     Dosage: 48 MG, QD
     Route: 061
     Dates: start: 20190913, end: 20190913
  15. TAMIPOOL [Concomitant]
     Active Substance: VITAMINS
     Indication: PROPHYLAXIS
     Dosage: 1 DF, QD
     Route: 042
     Dates: start: 20190922, end: 20190924
  16. PRECEDEX [Concomitant]
     Active Substance: DEXMEDETOMIDINE HYDROCHLORIDE
     Indication: SEDATION
     Dosage: 50 ML, QD
     Route: 042
     Dates: start: 20190919, end: 20190920
  17. FENTANYL CITRATE. [Concomitant]
     Active Substance: FENTANYL CITRATE
     Indication: PRODUCT USED FOR UNKNOWN INDICATION
     Dosage: 1 DF, QD (AMPOULE)
     Route: 042
     Dates: start: 20190918, end: 20190918
  18. SMOFKABIVEN PERIPHERAL [Concomitant]
     Indication: PROPHYLAXIS
     Dosage: 1448 ML, QD
     Route: 042
     Dates: start: 20190916, end: 20190916
  19. HEXAMEDINE [Concomitant]
     Indication: PROPHYLAXIS
     Dosage: 100 ML, QD
     Route: 049
     Dates: start: 20190916, end: 20190924
  20. DIOVAN [Concomitant]
     Active Substance: VALSARTAN
     Indication: HYPERTENSION
     Dosage: 0.5 DF, QD
     Route: 048
     Dates: start: 20190828
  21. PENIRAMIN [Concomitant]
     Indication: PROPHYLAXIS
     Dosage: 1 DF, QD (AMPOULE)
     Route: 042
     Dates: start: 20190916, end: 20190926
  22. REMIFENTANILO KABI [Concomitant]
     Indication: PRODUCT USED FOR UNKNOWN INDICATION
     Dosage: 2 DF, QD (AMPOULE)
     Route: 042
     Dates: start: 20190916, end: 20190919
  23. SIGMART [Concomitant]
     Active Substance: NICORANDIL
     Indication: ANGINA PECTORIS
     Dosage: 2 DF, QD
     Route: 048
     Dates: start: 20190828
  24. EXVAN PLUS [Concomitant]
     Indication: HYPERTENSION
     Dosage: 1 DF, QD
     Route: 048
     Dates: start: 20161213, end: 20190916
  25. PHAZYME [DIASTASE;PANCREATIN;PEPSIN;SIMETICONE] [Concomitant]
     Indication: PROPHYLAXIS
     Dosage: 3 DF, QD
     Route: 048
     Dates: start: 20190913, end: 20190913
  26. PERI OLIMEL N4E [Concomitant]
     Indication: PROPHYLAXIS
     Dosage: 1500 ML, QD
     Route: 042
     Dates: start: 20190922, end: 20190924
  27. LEVOTENSION [Concomitant]
     Indication: HYPERTENSION
     Dosage: 1 DF, QD
     Route: 048
     Dates: start: 20190913, end: 20190913
  28. SYNTHROID [Concomitant]
     Active Substance: LEVOTHYROXINE SODIUM
     Indication: HYPOTHYROIDISM
     Dosage: 1 DF, QD
     Route: 048
     Dates: start: 20180621
  29. ELIQUIS [Concomitant]
     Active Substance: APIXABAN
     Indication: ANGINA PECTORIS
     Dosage: 2 DF, QD
     Route: 048
     Dates: start: 20190921, end: 20191003
  30. GANATON [Concomitant]
     Active Substance: ITOPRIDE
     Indication: PROPHYLAXIS
     Dosage: 2 DF, QD
     Route: 048
     Dates: start: 20190828

REACTIONS (4)
  - Pneumonia [Recovered/Resolved]
  - Pneumonia [Fatal]
  - Myocardial infarction [Not Recovered/Not Resolved]
  - Chest pain [Not Recovered/Not Resolved]

NARRATIVE: CASE EVENT DATE: 20190916
